FAERS Safety Report 11669047 (Version 5)
Quarter: 2017Q4

REPORT INFORMATION
  Report Type: Spontaneous
  Country: US (occurrence: US)
  Receive Date: 20151027
  Receipt Date: 20171018
  Transmission Date: 20180320
  Serious: Yes (Other)
  Sender: FDA-Public Use
  Company Number: US-PFIZER INC-2015352777

PATIENT
  Age: 70 Year
  Sex: Male
  Weight: 96.16 kg

DRUGS (11)
  1. LANSOPRAZOLE. [Concomitant]
     Active Substance: LANSOPRAZOLE
     Indication: GASTROOESOPHAGEAL REFLUX DISEASE
     Dosage: 30 MG, 1X/DAY
  2. HYOSCYAMINE. [Concomitant]
     Active Substance: HYOSCYAMINE
     Indication: IRRITABLE BOWEL SYNDROME
     Dosage: 0.125 MG, TAKING IT BEFORE FOOD OR EVERY 4 HOURS AS NEEDED
  3. METOPROLOL SUCCINATE ER [Concomitant]
     Active Substance: METOPROLOL SUCCINATE
     Dosage: 25 MG, 1X/DAY
  4. GABAPENTIN. [Suspect]
     Active Substance: GABAPENTIN
     Indication: SPINAL DISORDER
     Dosage: 300 MG, 1X/DAY (AT BEDTIME)
     Dates: start: 20150824, end: 20150824
  5. OXYCODONE/ACETAMINOPHEN [Concomitant]
     Active Substance: ACETAMINOPHEN\OXYCODONE HYDROCHLORIDE
     Indication: PAIN
     Dosage: UNK
     Dates: end: 20151015
  6. TAMSULOSIN HCL [Concomitant]
     Active Substance: TAMSULOSIN
     Indication: MICTURITION DISORDER
     Dosage: 0.4 MG, 1X/DAY
  7. GABAPENTIN. [Suspect]
     Active Substance: GABAPENTIN
     Dosage: 300 MG, 3X/DAY
     Dates: start: 20150826, end: 20151006
  8. CHLORDIAZEPOXIDE HYDROCHLORIDE, CLIDINIUM BROMIDE [Concomitant]
     Indication: IRRITABLE BOWEL SYNDROME
     Dosage: ONE TO TWO TABLETS ONCE A DAY
  9. GABAPENTIN. [Suspect]
     Active Substance: GABAPENTIN
     Dosage: 300 MG, 1X/DAY (AT NIGHT)
     Route: 048
     Dates: start: 20150928, end: 2015
  10. CHLORDIAZEPOXIDE HYDROCHLORIDE, CLIDINIUM BROMIDE [Concomitant]
     Dosage: 1 DF, 2X/DAY
     Dates: start: 1974
  11. GABAPENTIN. [Suspect]
     Active Substance: GABAPENTIN
     Indication: SPINAL COLUMN STENOSIS
     Dosage: 300 MG, 2X/DAY
     Dates: start: 20150825, end: 20150825

REACTIONS (11)
  - Feeling abnormal [Unknown]
  - Weight decreased [Unknown]
  - Musculoskeletal disorder [Unknown]
  - Hallucination, visual [Unknown]
  - Pain [Unknown]
  - Dry mouth [Unknown]
  - Somnolence [Unknown]
  - Body height decreased [Unknown]
  - Product use in unapproved indication [Unknown]
  - Hallucination [Unknown]
  - Arthralgia [Recovered/Resolved]

NARRATIVE: CASE EVENT DATE: 20150924
